FAERS Safety Report 19425284 (Version 1)
Quarter: 2021Q2

REPORT INFORMATION
  Report Type: Spontaneous
  Country: US (occurrence: US)
  Receive Date: 20210616
  Receipt Date: 20210616
  Transmission Date: 20210717
  Serious: Yes (Other)
  Sender: FDA-Public Use
  Company Number: US-FRESENIUS KABI-FK202106058

PATIENT
  Age: 51 Year
  Sex: Male

DRUGS (5)
  1. BEVACIZUMAB. [Concomitant]
     Active Substance: BEVACIZUMAB
     Indication: ADENOCARCINOMA OF COLON
     Dosage: FOLFIRINOX + BEVACIZUMAB
     Route: 065
  2. FLUOROURACIL (MANUFACTURER UNKNOWN) [Suspect]
     Active Substance: FLUOROURACIL
     Indication: ADENOCARCINOMA OF COLON
     Dosage: 5FU INFUSION; FOLFIRINOX + BEVACIZUMAB
     Route: 065
  3. IRINOTECAN [Concomitant]
     Active Substance: IRINOTECAN
     Indication: ADENOCARCINOMA OF COLON
     Dosage: FOLFIRINOX + BEVACIZUMAB
     Route: 065
  4. FOLINIC ACID [Concomitant]
     Active Substance: LEUCOVORIN
     Indication: ADENOCARCINOMA OF COLON
     Dosage: FOLFIRINOX + BEVACIZUMAB
     Route: 065
  5. OXALIPLATIN. [Concomitant]
     Active Substance: OXALIPLATIN
     Indication: ADENOCARCINOMA OF COLON
     Dosage: FOLFIRINOX + BEVACIZUMAB
     Route: 065

REACTIONS (4)
  - Dysphagia [Unknown]
  - Confusional state [Recovering/Resolving]
  - Vision blurred [Recovering/Resolving]
  - Dysarthria [Recovering/Resolving]
